FAERS Safety Report 5572918-8 (Version None)
Quarter: 2007Q4

REPORT INFORMATION
  Report Type: 
  Country: None (occurrence: None)
  Receive Date: 20071219
  Receipt Date: 20071219
  Transmission Date: 20080405
  Serious: No
  Sender: FDA-Public Use
  Company Number: None

PATIENT
  Age: 21 Year
  Sex: Male
  Weight: 73.9363 kg

DRUGS (7)
  1. DEPAKOTE [Suspect]
     Dosage: 500MG AM 750MG HS  PO
     Route: 048
  2. FLUVOXAMINE MALEATE [Concomitant]
  3. DIPHENHYDRAMINE HCL [Concomitant]
  4. CLONAZEPAM [Concomitant]
  5. LORAZEPAM [Concomitant]
  6. ZIPRASIDONE HCL [Concomitant]
  7. OLANZAPINE [Concomitant]

REACTIONS (1)
  - WEIGHT INCREASED [None]
